FAERS Safety Report 6430925-7 (Version None)
Quarter: 2009Q4

REPORT INFORMATION
  Report Type: 
  Country: None (occurrence: None)
  Receive Date: 20091106
  Receipt Date: 20091104
  Transmission Date: 20100525
  Serious: Yes (Death)
  Sender: FDA-Public Use
  Company Number: US-AVENTIS-200919570US

PATIENT
  Age: 75 Year
  Sex: Female

DRUGS (3)
  1. LOVENOX [Suspect]
     Indication: PULMONARY EMBOLISM
     Dosage: DOSE: UNK
  2. AVONEX [Suspect]
     Dosage: DOSE: UNK
  3. TORADOL [Suspect]
     Dosage: DOSE: UNK

REACTIONS (3)
  - CARDIAC ARREST [None]
  - DEATH [None]
  - URINARY TRACT INFECTION [None]
